FAERS Safety Report 7490740-2 (Version None)
Quarter: 2011Q2

REPORT INFORMATION
  Report Type: 
  Country: None (occurrence: None)
  Receive Date: 20110519
  Receipt Date: 20100116
  Transmission Date: 20111010
  Serious: Yes (Death, Other)
  Sender: FDA-Public Use
  Company Number: US-BAYER-201011557NA

PATIENT
  Age: 79 Year
  Sex: Female
  Weight: 60 kg

DRUGS (37)
  1. NITROGLYCERIN [Concomitant]
     Dosage: 10 MCG, UNK
     Route: 042
  2. SURFAK [Concomitant]
     Dosage: 240 MG, UNK
  3. DOPAMINE HCL [Concomitant]
     Dosage: 400 MG, UNK
     Route: 042
  4. DOPAMINE HCL [Concomitant]
     Dosage: UNK
     Route: 042
     Dates: start: 20020104, end: 20020110
  5. MANNITOL [Concomitant]
     Dosage: 12.5 G, UNK
     Route: 042
  6. NORCURON [Concomitant]
     Dosage: 20 MG, UNK
     Route: 042
     Dates: start: 20020104
  7. TRASYLOL [Suspect]
     Dosage: 400 ML FULL DOSE
     Route: 042
     Dates: start: 20020104
  8. HEPARIN [Concomitant]
     Dosage: 1000-25000 UNITS
     Route: 042
     Dates: start: 20020104
  9. FLUMAZENIL [Concomitant]
     Dosage: 0.5 MG, UNK
     Route: 042
  10. ZOFRAN [Concomitant]
     Dosage: 4 MG, UNK
     Route: 042
  11. NITROGLYCERIN [Concomitant]
  12. SYNTHROID [Concomitant]
     Dosage: 0.05 MG, UNK
     Route: 048
  13. ACETYLSALICYLIC ACID SRT [Concomitant]
  14. FUROSEMIDE [Concomitant]
     Dosage: 10-100 MG
     Route: 042
     Dates: start: 20020104
  15. KEFZOL [Concomitant]
     Dosage: 1 G, UNK
     Route: 042
     Dates: start: 20020104, end: 20020110
  16. LOTENSIN [Concomitant]
     Dosage: 10 MG, UNK
     Route: 048
  17. VERSED [Concomitant]
     Dosage: UNK
     Route: 042
     Dates: start: 20020104
  18. INTEGRILIN [Concomitant]
     Dosage: 5 ML, UNK
     Route: 042
  19. CRYOPRECIPITATES [Concomitant]
     Dosage: 4 U, UNK
     Route: 042
     Dates: start: 20020104
  20. HEPARIN [Concomitant]
     Dosage: 1000-2000 UNITS
     Route: 042
  21. ZOCOR [Concomitant]
     Dosage: 10 MG, UNK
     Route: 048
  22. NARCAN [Concomitant]
     Dosage: 0.4 MG, UNK
     Route: 042
  23. NITROGLYCERIN [Concomitant]
     Dosage: 400 MCG
     Route: 042
  24. PROTAMINE SULFATE [Concomitant]
     Dosage: 20 MG, UNK
     Route: 042
  25. FRESH FROZEN PLASMA [Concomitant]
     Dosage: 8 U, UNK
     Route: 042
     Dates: start: 20020104
  26. ACETAMINOPHEN [Concomitant]
     Dosage: 650 MG, UNK
     Route: 048
  27. ATROPINE [Concomitant]
     Dosage: 1 MG, UNK
     Route: 042
  28. PROTAMINE SULFATE [Concomitant]
     Dosage: 500 MG, UNK
     Route: 042
     Dates: start: 20020104
  29. PAXIL [Concomitant]
     Dosage: 1 UNK
     Route: 048
  30. ATENOLOL [Concomitant]
     Dosage: 25 MG, UNK
     Route: 048
  31. PLATELETS [Concomitant]
     Dosage: 4 U, UNK
     Route: 042
     Dates: start: 20020104
  32. TRASYLOL [Suspect]
     Indication: CORONARY ARTERY BYPASS
     Dosage: 200 ML ONCE,  PUMP PRIME
     Route: 042
     Dates: start: 20020104, end: 20020104
  33. PREMARIN [Concomitant]
     Dosage: 0.625 UNK
     Route: 048
  34. DEMEROL [Concomitant]
     Dosage: 12.5-25 MG
     Route: 042
  35. VERSED [Concomitant]
     Dosage: 1-2 MG
     Route: 042
  36. ALBUMIN (HUMAN) [Concomitant]
     Dosage: 12.5 G, UNK
     Route: 042
     Dates: start: 20020104
  37. VANCOMYCIN [Concomitant]
     Dosage: 1 G, UNK
     Route: 042
     Dates: start: 20020104

REACTIONS (15)
  - RENAL IMPAIRMENT [None]
  - ANXIETY [None]
  - RENAL INJURY [None]
  - CARDIAC DISORDER [None]
  - FEAR [None]
  - CEREBROVASCULAR ACCIDENT [None]
  - ORGAN FAILURE [None]
  - PAIN [None]
  - DEATH [None]
  - MYOCARDIAL INFARCTION [None]
  - RENAL FAILURE [None]
  - UNEVALUABLE EVENT [None]
  - DEPRESSION [None]
  - ANHEDONIA [None]
  - INJURY [None]
